FAERS Safety Report 6612191-2 (Version None)
Quarter: 2010Q1

REPORT INFORMATION
  Report Type: 
  Country: None (occurrence: None)
  Receive Date: 20100302
  Receipt Date: 20100302
  Transmission Date: 20100710
  Serious: Yes (Other)
  Sender: FDA-Public Use
  Company Number: None

PATIENT
  Age: 68 Year
  Sex: Male
  Weight: 95.2554 kg

DRUGS (1)
  1. SEPTOCAINE [Suspect]
     Indication: ANAESTHESIA
     Dosage: 3 INJECTION BUCCAL
     Route: 002
     Dates: start: 20100226, end: 20100226

REACTIONS (2)
  - ANAESTHETIC COMPLICATION [None]
  - PARAESTHESIA ORAL [None]
